FAERS Safety Report 7302512-X (Version None)
Quarter: 2011Q1

REPORT INFORMATION
  Report Type: 
  Country: None (occurrence: None)
  Receive Date: 20110218
  Receipt Date: 20110208
  Transmission Date: 20110831
  Serious: Yes (Disabling)
  Sender: FDA-Public Use
  Company Number: US-ELI_LILLY_AND_COMPANY-US201102002725

PATIENT
  Sex: Female

DRUGS (2)
  1. HUMALOG MIX 75/25 [Suspect]
     Indication: DIABETES MELLITUS
     Dosage: 100 U, 2/D
     Dates: start: 20091201
  2. GLUCOPHAGE [Concomitant]

REACTIONS (4)
  - ARTHRITIS [None]
  - MACULAR DEGENERATION [None]
  - SPINAL COLUMN STENOSIS [None]
  - VISUAL IMPAIRMENT [None]
